FAERS Safety Report 4938617-8 (Version None)
Quarter: 2006Q1

REPORT INFORMATION
  Report Type: 
  Country: None (occurrence: None)
  Receive Date: 20060309
  Receipt Date: 20060301
  Transmission Date: 20060701
  Serious: Yes (Hospitalization, Other)
  Sender: FDA-Public Use
  Company Number: US-AVENTIS-200612051US

PATIENT
  Sex: Female
  Weight: 69.09 kg

DRUGS (15)
  1. LANTUS [Suspect]
     Indication: DIABETES MELLITUS
     Dosage: DOSE UNIT: UNITS
  2. LANTUS [Suspect]
     Dosage: DOSE UNIT: UNITS
  3. OPTICLIK (INSULIN INJECTION PEN) [Suspect]
     Indication: DIABETES MELLITUS
  4. ASPIRIN [Concomitant]
  5. ASPIRIN [Concomitant]
  6. UNKNOWN DRUG [Concomitant]
     Dosage: DOSE: UNK
  7. PLAVIX [Concomitant]
     Dosage: DOSE: UNK
  8. NORVASC [Concomitant]
     Dosage: DOSE: UNK
  9. LOPRESSOR [Concomitant]
     Dosage: DOSE: UNK
  10. DILTIAZEM [Concomitant]
     Dosage: DOSE: UNK
  11. ISOSORBIDE [Concomitant]
     Dosage: DOSE: UNK
  12. TRICOR [Concomitant]
     Dosage: DOSE: UNK
  13. ZANTAC [Concomitant]
     Dosage: DOSE: UNK
  14. PAXIL [Concomitant]
     Dosage: DOSE: UNK
  15. VISTARIL [Concomitant]
     Dosage: DOSE: UNK

REACTIONS (3)
  - ANGINA PECTORIS [None]
  - HYPERGLYCAEMIA [None]
  - WEIGHT INCREASED [None]
